FAERS Safety Report 7737177-6 (Version None)
Quarter: 2011Q3

REPORT INFORMATION
  Report Type: 
  Country: None (occurrence: None)
  Receive Date: 20110908
  Receipt Date: 20110902
  Transmission Date: 20111222
  Serious: Yes (Hospitalization)
  Sender: FDA-Public Use
  Company Number: FR-ROCHE-800507

PATIENT
  Sex: Female

DRUGS (6)
  1. CEFIXIME [Concomitant]
     Route: 048
  2. ACETAMINOPHEN [Concomitant]
     Route: 048
     Dates: start: 20110516
  3. ASPIRIN [Concomitant]
     Dosage: ONE SACHET DAILY
     Route: 048
  4. ROCEPHIN [Suspect]
     Indication: URINARY TRACT INFECTION
     Route: 042
     Dates: start: 20110518, end: 20110528
  5. XARELTO [Suspect]
     Indication: THROMBOSIS PROPHYLAXIS
     Route: 048
     Dates: start: 20110516, end: 20110520
  6. AMLODIPINE BESYLATE [Concomitant]
     Route: 048

REACTIONS (2)
  - DEEP VEIN THROMBOSIS [None]
  - DRUG INEFFECTIVE [None]
